FAERS Safety Report 20442963 (Version 3)
Quarter: 2022Q1

REPORT INFORMATION
  Report Type: Spontaneous
  Country: JP (occurrence: JP)
  Receive Date: 20220208
  Receipt Date: 20220330
  Transmission Date: 20220424
  Serious: Yes (Other)
  Sender: FDA-Public Use
  Company Number: JP-GSKNCCC-Case-01414032_AE-54492

PATIENT
  Age: 70 Year
  Sex: Female

DRUGS (1)
  1. SOTROVIMAB [Suspect]
     Active Substance: SOTROVIMAB
     Indication: COVID-19
     Dosage: 500 MG/100 ML/30 MIN
     Dates: start: 20220202, end: 20220202

REACTIONS (2)
  - Seizure [Unknown]
  - Hypoxia [Unknown]

NARRATIVE: CASE EVENT DATE: 20220201
